FAERS Safety Report 12808375 (Version 2)
Quarter: 2016Q4

REPORT INFORMATION
  Report Type: Spontaneous
  Country: KR (occurrence: KR)
  Receive Date: 20161004
  Receipt Date: 20161019
  Transmission Date: 20170207
  Serious: Yes (Life-Threatening)
  Sender: FDA-Public Use
  Company Number: KR-HQ SPECIALTY-KR-2016INT000909

PATIENT
  Age: 51 Year
  Sex: Male

DRUGS (4)
  1. DEXTROSE 5% [Concomitant]
     Active Substance: DEXTROSE
     Dosage: 120 ML/H: (475 ML) 1:1 CRUDE SOLUTION
  2. CISPLATIN. [Suspect]
     Active Substance: CISPLATIN
     Indication: GALLBLADDER CANCER
     Dosage: IVF, 44 MG/BSA(M2) [25 CYCLES]
  3. DEXTROSE 5% [Concomitant]
     Active Substance: DEXTROSE
     Indication: PRODUCT USED FOR UNKNOWN INDICATION
     Dosage: 60 ML/H: (15 ML) 1:1 CRUDE SOLUTION
  4. CISPLATIN. [Suspect]
     Active Substance: CISPLATIN
     Dosage: [1 MG/ML] 0.03 ML, UNK

REACTIONS (1)
  - Anaphylactic shock [Unknown]
